FAERS Safety Report 18214356 (Version 2)
Quarter: 2020Q3

REPORT INFORMATION
  Report Type: Spontaneous
  Country: TR (occurrence: TR)
  Receive Date: 20200831
  Receipt Date: 20200914
  Transmission Date: 20201103
  Serious: Yes (Other)
  Sender: FDA-Public Use
  Company Number: NVSC2020TR238006

PATIENT
  Age: 32 Year
  Sex: Male

DRUGS (1)
  1. PANTO [PANTOPRAZOLE SODIUM] [Suspect]
     Active Substance: PANTOPRAZOLE SODIUM
     Indication: GASTROOESOPHAGEAL REFLUX DISEASE
     Dosage: QD (MORNING) STARTED IN JULY
     Route: 065

REACTIONS (9)
  - Hyperhidrosis [Recovered/Resolved]
  - Dizziness [Not Recovered/Not Resolved]
  - Asphyxia [Recovered/Resolved]
  - Oesophageal stenosis [Recovered/Resolved]
  - Scar [Recovered/Resolved]
  - Dysphagia [Recovered/Resolved]
  - Vertigo [Recovered/Resolved]
  - Dyspnoea [Recovered/Resolved]
  - Drug ineffective [Unknown]
